FAERS Safety Report 14432326 (Version 1)
Quarter: 2018Q1

REPORT INFORMATION
  Report Type: Spontaneous
  Country: US (occurrence: US)
  Receive Date: 20180124
  Receipt Date: 20180124
  Transmission Date: 20180509
  Serious: Yes (Other)
  Sender: FDA-Public Use
  Company Number: US-JNJFOC-20180127296

PATIENT
  Age: 72 Year
  Sex: Female

DRUGS (19)
  1. KETOROLAC [Concomitant]
     Active Substance: KETOROLAC\KETOROLAC TROMETHAMINE
     Dosage: 10 MG, 1 TAB AT Q 6 HRS
     Route: 048
  2. IMBRUVICA [Suspect]
     Active Substance: IBRUTINIB
     Indication: CHRONIC LYMPHOCYTIC LEUKAEMIA
     Route: 048
     Dates: start: 20170301
  3. IMBRUVICA [Suspect]
     Active Substance: IBRUTINIB
     Indication: B-CELL SMALL LYMPHOCYTIC LYMPHOMA
     Route: 048
     Dates: start: 20170301
  4. FLUCONAZOLE. [Concomitant]
     Active Substance: FLUCONAZOLE
     Indication: IMMUNISATION
     Dosage: 180 MCG/0.5 ML
     Route: 030
  5. SULFAMETHOXAZOL W/TRIMETOPRIM [Concomitant]
     Active Substance: SULFAMETHOXAZOLE\TRIMETHOPRIM
     Dosage: 400 MG -80 MG/5M
     Route: 042
  6. TOBRAMYCIN AND DEXAMETHASONE [Concomitant]
     Active Substance: DEXAMETHASONE\TOBRAMYCIN
     Dosage: 0.3%- 0.1%; ONE DROP IN LEFT EYE, TID
     Route: 047
     Dates: start: 20170523
  7. TRAVATAN Z [Concomitant]
     Active Substance: TRAVOPROST
     Dosage: ONE DROP IN EACH EYE, QHS
     Route: 047
     Dates: start: 20171202
  8. GABAPENTIN. [Concomitant]
     Active Substance: GABAPENTIN
  9. MELOXICAM. [Concomitant]
     Active Substance: MELOXICAM
     Dosage: 15 MG, QHS
     Route: 048
  10. FLUTICASONE. [Concomitant]
     Active Substance: FLUTICASONE
     Dosage: 50 MCG, 1-2 SPRAYS IN EACH NOSTRILS, QD
     Route: 045
  11. LOTEMAX [Concomitant]
     Active Substance: LOTEPREDNOL ETABONATE
     Route: 047
  12. PRIMIDONE. [Concomitant]
     Active Substance: PRIMIDONE
     Dosage: 50 MG, 2 TABLETS QHS
     Route: 048
  13. SYNALAR [Concomitant]
     Active Substance: FLUOCINOLONE ACETONIDE
  14. METOCLOPRAMIDE. [Concomitant]
     Active Substance: METOCLOPRAMIDE
  15. OFLOXACIN. [Concomitant]
     Active Substance: OFLOXACIN
  16. INFLUENZA VACCINE [Concomitant]
     Active Substance: INFLUENZA VIRUS VACCINE
     Dates: start: 20171023
  17. MONTELUKAST [Concomitant]
     Active Substance: MONTELUKAST SODIUM
  18. POLYMYXIN B SULFATE W/TRIMETHOPRIM /00640701/ [Concomitant]
  19. PREDNISOLONE ACETATE. [Concomitant]
     Active Substance: PREDNISOLONE ACETATE

REACTIONS (8)
  - Product use issue [Unknown]
  - Neuropathy peripheral [Unknown]
  - Blindness unilateral [Unknown]
  - Lymphadenopathy [Recovered/Resolved]
  - Tumour lysis syndrome [Unknown]
  - Visual impairment [Unknown]
  - Contusion [Unknown]
  - Off label use [Unknown]

NARRATIVE: CASE EVENT DATE: 20170301
